FAERS Safety Report 7504994-7 (Version None)
Quarter: 2011Q2

REPORT INFORMATION
  Report Type: 
  Country: None (occurrence: None)
  Receive Date: 20110526
  Receipt Date: 20110511
  Transmission Date: 20111010
  Serious: No
  Sender: FDA-Public Use
  Company Number: US-BIOGENIDEC-2011BI015950

PATIENT
  Sex: Female

DRUGS (5)
  1. AVONEX [Concomitant]
     Route: 030
     Dates: end: 20060701
  2. AVONEX [Concomitant]
     Route: 030
     Dates: end: 20060701
  3. AVONEX [Concomitant]
     Route: 030
     Dates: start: 19980601
  4. AVONEX [Concomitant]
     Indication: MULTIPLE SCLEROSIS
     Route: 030
     Dates: start: 19980601
  5. TYSABRI [Suspect]
     Indication: MULTIPLE SCLEROSIS
     Route: 042
     Dates: start: 20061201

REACTIONS (11)
  - MEMORY IMPAIRMENT [None]
  - FATIGUE [None]
  - LOWER RESPIRATORY TRACT INFECTION [None]
  - MIGRAINE [None]
  - WEIGHT DECREASED [None]
  - INFLUENZA [None]
  - ABDOMINAL PAIN UPPER [None]
  - OSTEOPOROSIS [None]
  - CYSTITIS [None]
  - MUSCLE SPASTICITY [None]
  - NASOPHARYNGITIS [None]
